FAERS Safety Report 25407279 (Version 2)
Quarter: 2025Q2

REPORT INFORMATION
  Report Type: Report from Study
  Country: US (occurrence: US)
  Receive Date: 20250606
  Receipt Date: 20250616
  Transmission Date: 20250717
  Serious: Yes (Hospitalization)
  Sender: ABBVIE
  Company Number: US-ABBVIE-6310530

PATIENT
  Age: 62 Year
  Sex: Male

DRUGS (1)
  1. SKYRIZI [Suspect]
     Active Substance: RISANKIZUMAB-RZAA
     Indication: Colitis ulcerative
     Route: 042
     Dates: start: 20250304

REACTIONS (4)
  - Localised infection [Recovering/Resolving]
  - Poor peripheral circulation [Not Recovered/Not Resolved]
  - Large intestinal ulcer [Recovering/Resolving]
  - Anal ulcer [Recovering/Resolving]

NARRATIVE: CASE EVENT DATE: 20250101
